FAERS Safety Report 17025806 (Version 1)
Quarter: 2019Q4

REPORT INFORMATION
  Report Type: Spontaneous
  Country: US (occurrence: US)
  Receive Date: 20191008
  Receipt Date: 20191008
  Transmission Date: 20200122
  Serious: Yes (Life-Threatening, Disabling)
  Sender: FDA-Public Use
  Company Number: None

PATIENT
  Sex: Female

DRUGS (6)
  1. COMBIVIR [Suspect]
     Active Substance: LAMIVUDINE\ZIDOVUDINE
     Indication: HIV INFECTION
     Dosage: ?          QUANTITY:2 DF DOSAGE FORM;?
     Route: 048
  2. VITAMIN D [Concomitant]
     Active Substance: VITAMIN D NOS
  3. VIRAMUNE [Suspect]
     Active Substance: NEVIRAPINE
  4. COMPLERA [Concomitant]
     Active Substance: EMTRICITABINE\RILPIVIRINE HYDROCHLORIDE\TENOFOVIR DISOPROXIL FUMARATE
  5. DIAZAPAM [Concomitant]
     Active Substance: DIAZEPAM
  6. CLARITON [Concomitant]
     Active Substance: UNSPECIFIED INGREDIENT

REACTIONS (14)
  - Musculoskeletal discomfort [None]
  - Gait disturbance [None]
  - Influenza like illness [None]
  - Pneumocystis jirovecii pneumonia [None]
  - Meningioma [None]
  - Brain tumour operation [None]
  - Drug ineffective [None]
  - Euphoric mood [None]
  - Malaise [None]
  - Fatigue [None]
  - Feeling hot [None]
  - Hyperchlorhydria [None]
  - Victim of crime [None]
  - Musculoskeletal chest pain [None]
